FAERS Safety Report 4752233-2 (Version None)
Quarter: 2005Q3

REPORT INFORMATION
  Report Type: 
  Country: None (occurrence: None)
  Receive Date: 20050822
  Receipt Date: 20050822
  Transmission Date: 20060218
  Serious: Yes (Hospitalization, Other)
  Sender: FDA-Public Use
  Company Number: None

PATIENT
  Sex: Male
  Weight: 91.6 kg

DRUGS (2)
  1. CISPLATIN [Suspect]
     Indication: TRANSITIONAL CELL CARCINOMA
     Dosage: SEE IMAGE
     Dates: start: 20050706
  2. GEMCITABINE [Suspect]
     Dosage: SEE IMAGE

REACTIONS (2)
  - NEUROGENIC BLADDER [None]
  - URINARY RETENTION [None]
